FAERS Safety Report 23877356 (Version 1)
Quarter: 2024Q2

REPORT INFORMATION
  Report Type: Report from Study
  Country: US (occurrence: US)
  Receive Date: 20240521
  Receipt Date: 20240521
  Transmission Date: 20240716
  Serious: Yes (Other)
  Sender: FDA-Public Use
  Company Number: US-ABBVIE-5646895

PATIENT
  Sex: Female

DRUGS (1)
  1. HUMIRA [Suspect]
     Active Substance: ADALIMUMAB
     Indication: Product used for unknown indication
     Dosage: CITRATE FREE, FORM STRENGTH 40 MILLIGRAM
     Route: 058
     Dates: start: 2009

REACTIONS (11)
  - Meniscus injury [Recovering/Resolving]
  - Chronic obstructive pulmonary disease [Recovering/Resolving]
  - Lung disorder [Recovering/Resolving]
  - Ligament rupture [Recovering/Resolving]
  - Asthma [Recovering/Resolving]
  - Blood glucose increased [Recovering/Resolving]
  - Glycosylated haemoglobin increased [Recovering/Resolving]
  - Stress [Recovering/Resolving]
  - Joint injury [Recovering/Resolving]
  - Cartilage injury [Recovering/Resolving]
  - Victim of crime [Recovering/Resolving]
